FAERS Safety Report 17096654 (Version 1)
Quarter: 2019Q4

REPORT INFORMATION
  Report Type: Other
  Country: GB (occurrence: GB)
  Receive Date: 20191202
  Receipt Date: 20191202
  Transmission Date: 20200122
  Serious: Yes (Other)
  Sender: FDA-Public Use
  Company Number: GB-EMCURE PHARMACEUTICALS LTD-2019-EPL-1108

PATIENT
  Age: 35 Year
  Sex: Female

DRUGS (32)
  1. PROCYCLIDINE [Concomitant]
     Active Substance: PROCYCLIDINE
     Indication: EXTRAPYRAMIDAL DISORDER
     Dosage: UNK
  2. CASSIA SENNA [Concomitant]
     Active Substance: HERBALS\SENNOSIDES
     Dosage: UNK
  3. HUMULIN M3 [Concomitant]
     Active Substance: INSULIN HUMAN
     Dosage: UNK
  4. ZUCLOPENTHIXOL DECANOATE [Concomitant]
     Active Substance: ZUCLOPENTHIXOL DECANOATE
     Indication: AGITATION
     Dosage: UNK
     Route: 030
  5. LOPERAMIDE [Concomitant]
     Active Substance: LOPERAMIDE
     Dosage: UNK
  6. SALBUTAMOL [Concomitant]
     Active Substance: ALBUTEROL
     Dosage: UNK
  7. MELATONIN [Concomitant]
     Active Substance: MELATONIN
     Dosage: UNK
     Route: 065
  8. SODIUM VALPROATE [Concomitant]
     Active Substance: VALPROATE SODIUM
     Indication: AFFECTIVE DISORDER
     Dosage: UNK
  9. OMEPRAZOLE. [Concomitant]
     Active Substance: OMEPRAZOLE
     Dosage: UNK
  10. HALOPERIDOL. [Concomitant]
     Active Substance: HALOPERIDOL
     Indication: PSYCHOTIC SYMPTOM
     Dosage: UNK
     Route: 030
  11. LORAZEPAM. [Concomitant]
     Active Substance: LORAZEPAM
     Indication: AGITATION
     Dosage: UNK
     Route: 065
  12. NICOTINE. [Concomitant]
     Active Substance: NICOTINE
     Dosage: UNK
  13. BUSPIRONE [Concomitant]
     Active Substance: BUSPIRONE HYDROCHLORIDE
     Indication: ANXIETY
     Dosage: UNK
  14. CO-DYDRAMOL [Concomitant]
     Active Substance: ACETAMINOPHEN\DIHYDROCODEINE
     Dosage: UNK
  15. HALOPERIDOL. [Concomitant]
     Active Substance: HALOPERIDOL
     Indication: AGITATION
  16. MIRTAZAPINE. [Concomitant]
     Active Substance: MIRTAZAPINE
     Indication: DEPRESSIVE SYMPTOM
     Dosage: UNK
  17. ALGESAL [Concomitant]
     Active Substance: DIETHYLAMINE SALICYLATE
     Dosage: UNK
  18. VENLAFAXINE [Concomitant]
     Active Substance: VENLAFAXINE HYDROCHLORIDE
     Indication: DEPRESSIVE SYMPTOM
     Dosage: UNK
  19. CYCLIZINE [Concomitant]
     Active Substance: CYCLIZINE
     Dosage: UNK
     Route: 065
  20. NICORETTE                          /06270701/ [Concomitant]
     Dosage: UNK
     Route: 055
  21. CLOZAPINE. [Concomitant]
     Active Substance: CLOZAPINE
     Indication: PSYCHOTIC SYMPTOM
  22. LACTULOSE. [Concomitant]
     Active Substance: LACTULOSE
     Dosage: UNK
  23. METFORMIN [Suspect]
     Active Substance: METFORMIN HYDROCHLORIDE
     Indication: PRODUCT USED FOR UNKNOWN INDICATION
     Dosage: UNK
  24. MEBEVERINE [Suspect]
     Active Substance: MEBEVERINE
     Indication: IRRITABLE BOWEL SYNDROME
     Dosage: UNK
  25. ZUCLOPENTHIXOL DECANOATE [Concomitant]
     Active Substance: ZUCLOPENTHIXOL DECANOATE
     Indication: PSYCHOTIC SYMPTOM
  26. GAVISCON [Concomitant]
     Active Substance: ALUMINUM HYDROXIDE\MAGNESIUM CARBONATE
     Dosage: UNK
  27. CORSODYL [Concomitant]
     Active Substance: CHLORHEXIDINE GLUCONATE
     Dosage: UNK
  28. CLOZAPINE. [Concomitant]
     Active Substance: CLOZAPINE
     Indication: AGITATION
     Dosage: UNK
  29. LAXIDO [Concomitant]
     Active Substance: POLYETHYLENE GLYCOL 3350\POTASSIUM CHLORIDE\SODIUM BICARBONATE\SODIUM CHLORIDE
     Dosage: UNK
  30. CETIRIZINE [Concomitant]
     Active Substance: CETIRIZINE HYDROCHLORIDE
     Dosage: UNK
  31. SERETIDE [Concomitant]
     Active Substance: FLUTICASONE PROPIONATE\SALMETEROL XINAFOATE
  32. IPRATROPIUM BROMIDE. [Concomitant]
     Active Substance: IPRATROPIUM BROMIDE
     Dosage: UNK
     Route: 055

REACTIONS (1)
  - False positive investigation result [Unknown]
